FAERS Safety Report 6441179-X (Version None)
Quarter: 2009Q4

REPORT INFORMATION
  Report Type: 
  Country: None (occurrence: None)
  Receive Date: 20091116
  Receipt Date: 20091111
  Transmission Date: 20100525
  Serious: Yes (Death)
  Sender: FDA-Public Use
  Company Number: US-ABBOTT-09P-163-0608213-00

PATIENT

DRUGS (4)
  1. ULTANE [Suspect]
     Indication: SURGERY
     Dosage: UNKNOWN
     Route: 055
     Dates: start: 20091103, end: 20091103
  2. PROPOFOL [Suspect]
     Indication: SURGERY
     Dosage: UNKNOWN
     Route: 042
     Dates: start: 20091103, end: 20091103
  3. ANCEF [Concomitant]
     Indication: PREMEDICATION
     Dosage: UNKNOWN
     Route: 065
     Dates: start: 20091103, end: 20091103
  4. FENTANYL-100 [Concomitant]
     Indication: PREMEDICATION
     Dosage: UNKNOWN
     Route: 065
     Dates: start: 20091103, end: 20091103

REACTIONS (1)
  - HYPERTHERMIA MALIGNANT [None]
